FAERS Safety Report 19966356 (Version 1)
Quarter: 2021Q4

REPORT INFORMATION
  Report Type: Report from Study
  Country: US (occurrence: US)
  Receive Date: 20211019
  Receipt Date: 20211019
  Transmission Date: 20220303
  Serious: No
  Sender: FDA-Public Use
  Company Number: US-ACADIA PHARMACEUTICALS INC.-ACA-2021-PIM-003492

PATIENT
  Sex: Female

DRUGS (6)
  1. NUPLAZID [Suspect]
     Active Substance: PIMAVANSERIN TARTRATE
     Indication: Hallucination
     Dosage: 34 MILLIGRAM, QD
     Route: 048
     Dates: start: 20210521, end: 2021
  2. CLONAZEPAM [Concomitant]
     Active Substance: CLONAZEPAM
  3. DOCUSATE [Concomitant]
     Active Substance: DOCUSATE
  4. GALANTAMINE [Concomitant]
     Active Substance: GALANTAMINE
  5. QUETIAPINE [Concomitant]
     Active Substance: QUETIAPINE
  6. RYTARY [Concomitant]
     Active Substance: CARBIDOPA\LEVODOPA

REACTIONS (1)
  - Drug ineffective [Recovered/Resolved]
